FAERS Safety Report 7169599-9 (Version None)
Quarter: 2010Q4

REPORT INFORMATION
  Report Type: 
  Country: None (occurrence: None)
  Receive Date: 20101217
  Receipt Date: 20101208
  Transmission Date: 20110411
  Serious: Yes (Other)
  Sender: FDA-Public Use
  Company Number: US-JNJFOC-20100800707

PATIENT
  Sex: Female
  Weight: 70.31 kg

DRUGS (1)
  1. ORTHO EVRA [Suspect]
     Indication: CONTRACEPTION
     Route: 062

REACTIONS (4)
  - BLOOD CHOLESTEROL INCREASED [None]
  - MENORRHAGIA [None]
  - METRORRHAGIA [None]
  - UTERINE SPASM [None]
